FAERS Safety Report 7627405-X (Version None)
Quarter: 2011Q3

REPORT INFORMATION
  Report Type: 
  Country: None (occurrence: None)
  Receive Date: 20110721
  Receipt Date: 20110719
  Transmission Date: 20111222
  Serious: No
  Sender: FDA-Public Use
  Company Number: US-PFIZER INC-2011147405

PATIENT
  Sex: Female
  Weight: 62.585 kg

DRUGS (2)
  1. ZOLOFT [Suspect]
     Indication: ANXIETY
     Dosage: 25 MG, 1X/DAY
     Route: 048
     Dates: start: 20110615
  2. ZOLOFT [Suspect]
     Indication: DEPRESSION

REACTIONS (6)
  - DRUG INEFFECTIVE [None]
  - FEELING JITTERY [None]
  - DECREASED INTEREST [None]
  - FEELING ABNORMAL [None]
  - BLOOD CHOLESTEROL INCREASED [None]
  - BLOOD GLUCOSE INCREASED [None]
